FAERS Safety Report 8737586 (Version 2)
Quarter: 2013Q4

REPORT INFORMATION
  Report Type: Spontaneous
  Country: US (occurrence: US)
  Receive Date: 20120822
  Receipt Date: 20131101
  Transmission Date: 20140711
  Serious: No
  Sender: FDA-Public Use
  Company Number: US-009507513-1207USA007668

PATIENT
  Age: 40 Year
  Sex: Male

DRUGS (2)
  1. DULERA [Suspect]
     Indication: ASTHMA
     Dosage: 200MCG/5MCG BID
     Route: 055
  2. ALBUTEROL [Concomitant]

REACTIONS (2)
  - Cough [Unknown]
  - Nasal congestion [Unknown]
